FAERS Safety Report 5348553-3 (Version None)
Quarter: 2007Q2

REPORT INFORMATION
  Report Type: 
  Country: None (occurrence: None)
  Receive Date: 20070606
  Receipt Date: 20070528
  Transmission Date: 20071010
  Serious: Yes (Other)
  Sender: FDA-Public Use
  Company Number: CA-PFIZER INC-2007044108

PATIENT
  Sex: Female

DRUGS (2)
  1. DEPO-PROVERA SUSPENSION/INJ [Suspect]
     Indication: HORMONE REPLACEMENT THERAPY
     Dosage: FREQ:FIRST INJECTION, 1 EVERY MONTH
     Route: 030
     Dates: start: 19950101, end: 19950101
  2. DEPO-PROVERA SUSPENSION/INJ [Suspect]
     Dosage: FREQ:LAST INJECTION
     Route: 030
     Dates: start: 19960101, end: 19960101

REACTIONS (2)
  - BONE DENSITY DECREASED [None]
  - MYELOPATHY [None]
